FAERS Safety Report 4644812-8 (Version None)
Quarter: 2005Q2

REPORT INFORMATION
  Report Type: 
  Country: None (occurrence: None)
  Receive Date: 20050422
  Receipt Date: 20050415
  Transmission Date: 20051028
  Serious: Yes (Hospitalization)
  Sender: FDA-Public Use
  Company Number: 05H-122-0297678-00

PATIENT
  Age: 20 Year
  Sex: Female

DRUGS (1)
  1. PENTOTHAL [Suspect]
     Indication: GENERAL ANAESTHESIA
     Dosage: INTRAVENOUS
     Route: 042
     Dates: start: 20050225, end: 20050314

REACTIONS (2)
  - AGRANULOCYTOSIS [None]
  - PYREXIA [None]
